FAERS Safety Report 24172532 (Version 2)
Quarter: 2024Q4

REPORT INFORMATION
  Report Type: Report from Study
  Country: US (occurrence: US)
  Receive Date: 20240805
  Receipt Date: 20241029
  Transmission Date: 20250114
  Serious: No
  Sender: ACADIA PHARMACEUTICALS
  Company Number: US-ACADIA PHARMACEUTICALS INC.-ACA-2024-PIM-003574

PATIENT
  Sex: Female

DRUGS (6)
  1. NUPLAZID [Suspect]
     Active Substance: PIMAVANSERIN TARTRATE
     Indication: Parkinson^s disease
     Dosage: 34 MILLIGRAM, QD
     Route: 048
     Dates: start: 20220510
  2. NUPLAZID [Suspect]
     Active Substance: PIMAVANSERIN TARTRATE
     Dosage: 34 MILLIGRAM, QD
     Route: 048
  3. METHENAMINE [Concomitant]
     Active Substance: METHENAMINE
     Dosage: 500 MILLIGRAM
  4. NITROFURANTOIN MACROCRYSTALS [Concomitant]
     Active Substance: NITROFURANTOIN
     Dosage: 50 MILLIGRAM
  5. QUETIAPINE [Concomitant]
     Active Substance: QUETIAPINE
     Dosage: 25 MILLIGRAM
  6. RIVASTIGMINE [Concomitant]
     Active Substance: RIVASTIGMINE
     Dosage: 3 MILLIGRAM

REACTIONS (7)
  - Condition aggravated [Unknown]
  - Urinary tract infection [Unknown]
  - Dementia [Unknown]
  - Confusional state [Unknown]
  - Hallucination [Unknown]
  - Gait disturbance [Unknown]
  - Product dose omission issue [Unknown]
